FAERS Safety Report 16548718 (Version 1)
Quarter: 2019Q3

REPORT INFORMATION
  Report Type: Spontaneous
  Country: FR (occurrence: FR)
  Receive Date: 20190709
  Receipt Date: 20190709
  Transmission Date: 20191004
  Serious: Yes (Hospitalization)
  Sender: FDA-Public Use
  Company Number: FR-MYLANLABS-2019M1063964

PATIENT
  Age: 89 Year
  Sex: Female

DRUGS (11)
  1. ELIQUIS [Concomitant]
     Active Substance: APIXABAN
     Dosage: UNK
     Route: 048
  2. PARACETAMOL [Concomitant]
     Active Substance: ACETAMINOPHEN
     Dosage: UNK
     Route: 048
  3. TAZOBACTAM [Suspect]
     Active Substance: TAZOBACTAM
     Indication: DERMO-HYPODERMITIS
     Dosage: 3 DOSAGE FORM, QD
     Route: 042
     Dates: start: 20181024, end: 20181029
  4. ZYMAD [Concomitant]
     Active Substance: CHOLECALCIFEROL
     Dosage: UNK
     Route: 048
  5. FUROSEMIDE. [Concomitant]
     Active Substance: FUROSEMIDE
     Indication: PRODUCT USED FOR UNKNOWN INDICATION
     Dosage: 60 MILLIGRAM, QD
     Route: 048
  6. CETIRIZINE [Concomitant]
     Active Substance: CETIRIZINE HYDROCHLORIDE
     Dosage: UNK
     Route: 048
  7. VANCOMYCIN [Suspect]
     Active Substance: VANCOMYCIN
     Indication: DERMO-HYPODERMITIS
     Dosage: 1.5 GRAM, QD
     Route: 042
     Dates: start: 20181024, end: 20181029
  8. LEVOTHYROX [Concomitant]
     Active Substance: LEVOTHYROXINE
     Dosage: UNK
     Route: 048
  9. LANSOPRAZOLE. [Concomitant]
     Active Substance: LANSOPRAZOLE
     Dosage: UNK
     Route: 048
  10. HYDROCORTISONE. [Concomitant]
     Active Substance: HYDROCORTISONE
     Dosage: UNK
     Route: 048
  11. PIPERACILLINE                      /00502402/ [Suspect]
     Active Substance: PIPERACILLIN SODIUM
     Indication: DERMO-HYPODERMITIS
     Dosage: 3 DOSAGE FORM, QD
     Route: 042
     Dates: start: 20181024, end: 20181029

REACTIONS (2)
  - Hypoacusis [Not Recovered/Not Resolved]
  - Ototoxicity [Not Recovered/Not Resolved]

NARRATIVE: CASE EVENT DATE: 20181101
